FAERS Safety Report 4492378-8 (Version None)
Quarter: 2004Q4

REPORT INFORMATION
  Report Type: 
  Country: None (occurrence: None)
  Receive Date: 20041029
  Receipt Date: 20041021
  Transmission Date: 20050328
  Serious: Yes (Hospitalization)
  Sender: FDA-Public Use
  Company Number: 200415107BCC

PATIENT
  Age: 57 Year
  Sex: Female
  Weight: 74.8435 kg

DRUGS (6)
  1. ALEVE [Suspect]
     Indication: NASOPHARYNGITIS
     Dosage: 220 MG, ONCE, ORAL
     Route: 048
     Dates: start: 20041016
  2. LIPITOR [Concomitant]
  3. LOTENSIN [Concomitant]
  4. XANAX [Concomitant]
  5. ASPIRIN [Concomitant]
  6. PREMPRO [Concomitant]

REACTIONS (1)
  - TREMOR [None]
